FAERS Safety Report 7710270-X (Version None)
Quarter: 2011Q3

REPORT INFORMATION
  Report Type: 
  Country: None (occurrence: None)
  Receive Date: 20110825
  Receipt Date: 20110823
  Transmission Date: 20111222
  Serious: Yes (Hospitalization)
  Sender: FDA-Public Use
  Company Number: US-BRISTOL-MYERS SQUIBB COMPANY-15994551

PATIENT
  Age: 68 Year
  Sex: Female
  Weight: 130 kg

DRUGS (1)
  1. SPRYCEL [Suspect]
     Indication: ADENOID CYSTIC CARCINOMA
     Dosage: CYCLE: 28DAYS,70MG ORAL BID, LAST ADMINISTERED DOSE ON 02-AUG-2011 AND DISCONTINUED ON 03-AUG-2011.
     Route: 048
     Dates: start: 20110714, end: 20110803

REACTIONS (3)
  - ATELECTASIS [None]
  - PLEURAL EFFUSION [None]
  - DYSPNOEA [None]
